FAERS Safety Report 17567965 (Version 1)
Quarter: 2020Q1

REPORT INFORMATION
  Report Type: Spontaneous
  Country: US (occurrence: US)
  Receive Date: 20200320
  Receipt Date: 20200320
  Transmission Date: 20200409
  Serious: Yes (Other)
  Sender: FDA-Public Use
  Company Number: US-TEVA-2020-US-1207567

PATIENT
  Age: 61 Year
  Sex: Male

DRUGS (12)
  1. SYNRIBO [Suspect]
     Active Substance: OMACETAXINE MEPESUCCINATE
     Indication: REMISSION NOT ACHIEVED
  2. LIPITOR [Concomitant]
     Active Substance: ATORVASTATIN CALCIUM
  3. ICLUSIG [Concomitant]
     Active Substance: PONATINIB
  4. ZOFRAN [Concomitant]
     Active Substance: ONDANSETRON HYDROCHLORIDE
  5. SYNRIBO [Suspect]
     Active Substance: OMACETAXINE MEPESUCCINATE
     Indication: PHILADELPHIA CHROMOSOME POSITIVE
  6. TYLENOL [Concomitant]
     Active Substance: ACETAMINOPHEN
  7. ASPIRIN 81 LOW DOSE [Concomitant]
  8. BIOTIN [Concomitant]
     Active Substance: BIOTIN
  9. ALLOPURINOL. [Concomitant]
     Active Substance: ALLOPURINOL
  10. SYNRIBO [Suspect]
     Active Substance: OMACETAXINE MEPESUCCINATE
     Indication: CHRONIC MYELOID LEUKAEMIA
     Dosage: 2.8MG/0.80ML) SUB Q, BID FOR 7 DAYS OF 28 DAY CYCLE
     Route: 058
     Dates: start: 20180621
  11. ALLEGRA [Concomitant]
     Active Substance: FEXOFENADINE HYDROCHLORIDE
  12. METFORMIN HCL [Concomitant]
     Active Substance: METFORMIN HYDROCHLORIDE

REACTIONS (2)
  - Diabetes mellitus [Unknown]
  - Nausea [Unknown]
